FAERS Safety Report 7988273-X (Version None)
Quarter: 2011Q4

REPORT INFORMATION
  Report Type: 
  Country: None (occurrence: None)
  Receive Date: 20111216
  Receipt Date: 20111207
  Transmission Date: 20120403
  Serious: Yes (Disabling, Other)
  Sender: FDA-Public Use
  Company Number: MX-SANOFI-AVENTIS-2011SA080625

PATIENT
  Age: 54 Year
  Sex: Male
  Weight: 63 kg

DRUGS (2)
  1. LANTUS [Suspect]
     Indication: TYPE 2 DIABETES MELLITUS
     Route: 058
     Dates: start: 20101001, end: 20110501
  2. ALL OTHER THERAPEUTIC PRODUCTS [Concomitant]
     Indication: PANCREATITIS

REACTIONS (2)
  - RENAL FAILURE [None]
  - VISION BLURRED [None]
